FAERS Safety Report 23253544 (Version 3)
Quarter: 2024Q2

REPORT INFORMATION
  Report Type: Spontaneous
  Country: ES (occurrence: ES)
  Receive Date: 20231202
  Receipt Date: 20240412
  Transmission Date: 20240715
  Serious: Yes (Death, Other)
  Sender: FDA-Public Use
  Company Number: ES-JNJFOC-20230633158

PATIENT
  Age: 71 Year
  Sex: Female

DRUGS (24)
  1. BENDAMUSTINE HYDROCHLORIDE [Suspect]
     Active Substance: BENDAMUSTINE HYDROCHLORIDE
     Indication: Diffuse large B-cell lymphoma stage IV
     Dosage: UNK, CYCLIC, (2ND LINE, 8 CYCLES AS A PART OF EC REGIMEN)
     Route: 065
  2. BENDAMUSTINE HYDROCHLORIDE [Suspect]
     Active Substance: BENDAMUSTINE HYDROCHLORIDE
     Dosage: UNK, CYCLIC, (3RD LINE, 1 CYCLE, BRIDGE THERAPY)
     Route: 041
  3. CYCLOPHOSPHAMIDE [Suspect]
     Active Substance: CYCLOPHOSPHAMIDE
     Dosage: UNK, CYCLIC, (1ST LINE, 6 CYCLES AS A PART OF RCHOP REGIMEN)
     Route: 065
  4. CYCLOPHOSPHAMIDE [Suspect]
     Active Substance: CYCLOPHOSPHAMIDE
     Indication: Diffuse large B-cell lymphoma stage IV
     Dosage: UNK, CYCLIC, (2ND LINE, 8 CYCLES AS A PART OF EC REGIMEN)
     Route: 065
  5. CYTARABINE [Suspect]
     Active Substance: CYTARABINE
     Indication: Diffuse large B-cell lymphoma stage IV
     Dosage: UNK, (1ST LINE, 6 CYCLES AS A PART OF RCHOP REGIMEN)
     Route: 065
  6. DOXORUBICIN HYDROCHLORIDE [Suspect]
     Active Substance: DOXORUBICIN HYDROCHLORIDE
     Indication: Diffuse large B-cell lymphoma stage IV
     Dosage: CYCLIC (5TH LINE AS A PART OF R-MTX-ARA-C REGIMEN)
     Route: 065
  7. DEXAMETHASONE [Suspect]
     Active Substance: DEXAMETHASONE
     Indication: Diffuse large B-cell lymphoma stage IV
     Dosage: UNK UNK, CYCLIC, (1ST LINE, 6 CYCLES AS A PART OF RCHOP REGIMEN)
     Route: 065
  8. DEXAMETHASONE [Suspect]
     Active Substance: DEXAMETHASONE
     Dosage: UNK UNK, UNKNOWN FREQ.
     Route: 065
  9. EPIRUBICIN [Suspect]
     Active Substance: EPIRUBICIN
     Indication: Diffuse large B-cell lymphoma stage IV
     Dosage: UNK, CYCLIC, (1ST LINE, 6 CYCLES AS A PART OF RCHOP REGIMEN)
     Route: 065
  10. GENOXAL [Suspect]
     Active Substance: CYCLOPHOSPHAMIDE
     Dosage: UNK UNK, CYCLIC (2ND LINE, 8 CYCLES AS A PART OF EC REGIMEN)
     Route: 065
  11. GENOXAL [Suspect]
     Active Substance: CYCLOPHOSPHAMIDE
     Indication: Diffuse large B-cell lymphoma stage IV
     Dosage: UNK, (1ST LINE, 6 CYCLES AS A PART OF RCHOP REGIMEN)
     Route: 065
  12. GENOXAL [Suspect]
     Active Substance: CYCLOPHOSPHAMIDE
     Dosage: UNK, CYCLIC, (1ST LINE, 6 CYCLES AS A PART OF RCHOP REGIMEN)
     Route: 065
  13. IMBRUVICA [Suspect]
     Active Substance: IBRUTINIB
     Indication: Diffuse large B-cell lymphoma stage IV
     Dosage: UNK, CYCLIC (6TH LINE, 4 CYCLES)
     Route: 065
  14. METHOTREXATE [Suspect]
     Active Substance: METHOTREXATE
     Indication: Diffuse large B-cell lymphoma stage IV
     Dosage: CYCLIC (5TH LINE AS A PART OF R-MTX-ARA-C REGIMEN)
     Route: 065
  15. MOSUNETUZUMAB [Suspect]
     Active Substance: MOSUNETUZUMAB
     Indication: Diffuse large B-cell lymphoma stage IV
     Dosage: UNK UNK, CYCLIC (2ND LINE, 8 CYCLES)
     Route: 065
  16. PREDNISONE [Suspect]
     Active Substance: PREDNISONE
     Indication: Diffuse large B-cell lymphoma stage IV
     Dosage: UNK, CYCLIC (6TH LINE, 4 CYCLES)
     Route: 048
  17. TEMODAL [Suspect]
     Active Substance: TEMOZOLOMIDE
     Indication: Diffuse large B-cell lymphoma stage IV
     Dosage: UNK UNK, CYCLIC, (5TH LINE AS A PART OF RMTX-ARA-C REGIMEN)
     Route: 065
  18. TEMODAL [Suspect]
     Active Substance: TEMOZOLOMIDE
     Dosage: UNK UNK, CYCLIC (6TH LINE, 4 CYCLES)
     Route: 065
  19. TEMOZOLOMIDE [Suspect]
     Active Substance: TEMOZOLOMIDE
     Indication: Diffuse large B-cell lymphoma stage IV
     Dosage: UNK UNK, CYCLIC, (5TH LINE AS A PART OF RMTX-ARA-C REGIMEN)
     Route: 065
  20. TRUXIMA [Suspect]
     Active Substance: RITUXIMAB-ABBS
     Dosage: UNK UNK, CYCLIC, (1ST LINE, 6 CYCLES AS A PART OF RCHOP REGIMEN)
     Route: 065
  21. TRUXIMA [Suspect]
     Active Substance: RITUXIMAB-ABBS
     Indication: Diffuse large B-cell lymphoma stage IV
     Dosage: UNK UNK, CYCLIC, (3RD LINE, 1 CYCLE, BRIDGE THERAPY)
     Route: 065
  22. TRUXIMA [Suspect]
     Active Substance: RITUXIMAB-ABBS
     Dosage: UNK UNK, CYCLIC, (5TH LINE AS A PART OF R-MTX-ARA-C REGIMEN)
     Route: 065
  23. VINCRISTINE SULFATE [Suspect]
     Active Substance: VINCRISTINE SULFATE
     Indication: Diffuse large B-cell lymphoma stage IV
     Dosage: UNK, CYCLIC (1ST LINE, 6 CYCLES AS A PART OF RCHOP REGIMEN)
     Route: 065
  24. VINCRISTINE SULFATE [Suspect]
     Active Substance: VINCRISTINE SULFATE
     Indication: Diffuse large B-cell lymphoma

REACTIONS (13)
  - Death [Fatal]
  - Vasogenic cerebral oedema [Not Recovered/Not Resolved]
  - Malignant neoplasm progression [Recovered/Resolved]
  - Vasogenic cerebral oedema [Recovered/Resolved]
  - Malignant neoplasm progression [Recovered/Resolved]
  - Diffuse large B-cell lymphoma recurrent [Unknown]
  - Diffuse large B-cell lymphoma [Recovered/Resolved]
  - Diffuse large B-cell lymphoma [Not Recovered/Not Resolved]
  - Neurological symptom [Unknown]
  - Disease progression [Recovered/Resolved]
  - Disorientation [Unknown]
  - Off label use [Unknown]
  - Therapy partial responder [Unknown]
